FAERS Safety Report 7768842-2 (Version None)
Quarter: 2011Q3

REPORT INFORMATION
  Report Type: 
  Country: None (occurrence: None)
  Receive Date: 20110922
  Receipt Date: 20100921
  Transmission Date: 20111222
  Serious: No
  Sender: FDA-Public Use
  Company Number: US-ASTRAZENECA-2010SE44497

PATIENT
  Age: 71 Year
  Sex: Female

DRUGS (3)
  1. SEROQUEL [Suspect]
     Route: 048
     Dates: end: 20100901
  2. SEROQUEL [Suspect]
     Indication: BIPOLAR DISORDER
     Route: 048
     Dates: start: 20090101
  3. TRAZODONE HCL [Concomitant]

REACTIONS (4)
  - DRUG DOSE OMISSION [None]
  - DISTURBANCE IN ATTENTION [None]
  - SPEECH DISORDER [None]
  - AMNESIA [None]
